FAERS Safety Report 18908399 (Version 1)
Quarter: 2021Q1

REPORT INFORMATION
  Report Type: Spontaneous
  Country: IN (occurrence: IN)
  Receive Date: 20210218
  Receipt Date: 20210218
  Transmission Date: 20210420
  Serious: Yes (Other)
  Sender: FDA-Public Use
  Company Number: IN-SUN PHARMACEUTICAL INDUSTRIES LTD-2021R1-279334

PATIENT
  Age: 2 Month
  Sex: Female

DRUGS (2)
  1. CIPROFLOXACIN. [Suspect]
     Active Substance: CIPROFLOXACIN
     Indication: STENOTROPHOMONAS INFECTION
     Dosage: 10 MILLIGRAM/KILOGRAM, TID
     Route: 042
  2. FLUCONAZOLE. [Suspect]
     Active Substance: FLUCONAZOLE
     Indication: STENOTROPHOMONAS INFECTION
     Dosage: 3 MILLIGRAM/KILOGRAM, DAILY
     Route: 042

REACTIONS (6)
  - Generalised oedema [Unknown]
  - Petechiae [Unknown]
  - Hypotension [Unknown]
  - Drug ineffective [Unknown]
  - Seizure [Unknown]
  - Hyponatraemia [Unknown]
